FAERS Safety Report 7651576-2 (Version None)
Quarter: 2011Q3

REPORT INFORMATION
  Report Type: 
  Country: None (occurrence: None)
  Receive Date: 20110802
  Receipt Date: 20110802
  Transmission Date: 20111222
  Serious: Yes (Death, Hospitalization)
  Sender: FDA-Public Use
  Company Number: PHHO2009IT06377

PATIENT
  Sex: Male
  Weight: 69 kg

DRUGS (5)
  1. DELORAZEPAM [Concomitant]
  2. RIVASTIGMINE [Suspect]
     Indication: DEMENTIA ALZHEIMER'S TYPE
     Dosage: UNK
     Route: 062
     Dates: start: 20090506, end: 20090514
  3. EXELON [Suspect]
     Indication: DEMENTIA ALZHEIMER'S TYPE
     Dosage: UNK
     Route: 062
     Dates: start: 20080604, end: 20090505
  4. TRIAZOLAM [Concomitant]
  5. PROMAZINE HYDROCHLORIDE [Concomitant]

REACTIONS (10)
  - CARDIO-RESPIRATORY ARREST [None]
  - RENAL FAILURE ACUTE [None]
  - CONFUSIONAL STATE [None]
  - DISORIENTATION [None]
  - DELUSION [None]
  - HALLUCINATION, VISUAL [None]
  - ACUTE RESPIRATORY DISTRESS SYNDROME [None]
  - MOTOR DYSFUNCTION [None]
  - AGGRESSION [None]
  - IRRITABILITY [None]
